FAERS Safety Report 11455668 (Version 1)
Quarter: 2015Q3

REPORT INFORMATION
  Report Type: Spontaneous
  Country: US (occurrence: US)
  Receive Date: 20150903
  Receipt Date: 20150903
  Transmission Date: 20151125
  Serious: No
  Sender: FDA-Public Use
  Company Number: US-BEH-2014047273

PATIENT
  Age: 75 Year
  Sex: Female
  Weight: 58 kg

DRUGS (20)
  1. TYLENOL [Concomitant]
     Active Substance: ACETAMINOPHEN
  2. SODIUM CHLORIDE. [Concomitant]
     Active Substance: SODIUM CHLORIDE
  3. HYDROCHLOROTHIAZIDE. [Concomitant]
     Active Substance: HYDROCHLOROTHIAZIDE
  4. ADVAIR HFA [Concomitant]
     Active Substance: FLUTICASONE PROPIONATE\SALMETEROL XINAFOATE
  5. ZEMAIRA [Suspect]
     Active Substance: .ALPHA.1-PROTEINASE INHIBITOR HUMAN
     Indication: ENZYME ABNORMALITY
     Route: 042
     Dates: start: 20141123, end: 20141201
  6. OXYGEN. [Concomitant]
     Active Substance: OXYGEN
  7. OMEPRAZOLE. [Concomitant]
     Active Substance: OMEPRAZOLE
  8. ALBUTEROL. [Concomitant]
     Active Substance: ALBUTEROL
  9. MULTIVITAMIN [Concomitant]
     Active Substance: VITAMINS
  10. DIPHENHYDRAMINE. [Concomitant]
     Active Substance: DIPHENHYDRAMINE
  11. KIRKLAND SIGNATURE ALLERCLEAR [Concomitant]
     Active Substance: LORATADINE
  12. ZEMAIRA [Suspect]
     Active Substance: .ALPHA.1-PROTEINASE INHIBITOR HUMAN
     Indication: ENZYME ABNORMALITY
     Route: 042
     Dates: start: 20141123, end: 20141201
  13. ASPIRIN. [Concomitant]
     Active Substance: ASPIRIN
  14. LORATADINE. [Concomitant]
     Active Substance: LORATADINE
  15. BECLOMETHASONE [Concomitant]
     Active Substance: BECLOMETHASONE
  16. SPIRIVA [Concomitant]
     Active Substance: TIOTROPIUM BROMIDE MONOHYDRATE
  17. EPIPEN [Concomitant]
     Active Substance: EPINEPHRINE
  18. TAZTIA XT [Concomitant]
     Active Substance: DILTIAZEM HYDROCHLORIDE
  19. VITAMIN C [Concomitant]
     Active Substance: ASCORBIC ACID
  20. QVAR [Concomitant]
     Active Substance: BECLOMETHASONE DIPROPIONATE

REACTIONS (2)
  - Urticaria [Recovered/Resolved]
  - Influenza like illness [Recovered/Resolved]

NARRATIVE: CASE EVENT DATE: 20141123
